FAERS Safety Report 6140813-1 (Version None)
Quarter: 2009Q1

REPORT INFORMATION
  Report Type: 
  Country: None (occurrence: None)
  Receive Date: 20090331
  Receipt Date: 20090325
  Transmission Date: 20090719
  Serious: Yes (Hospitalization)
  Sender: FDA-Public Use
  Company Number: 189252ISR

PATIENT
  Age: 78 Year
  Sex: Male

DRUGS (1)
  1. WARFARIN SODIUM [Suspect]
     Indication: CEREBROVASCULAR ACCIDENT PROPHYLAXIS
     Dosage: (5 MG) ORAL
     Route: 048
     Dates: start: 20070718

REACTIONS (5)
  - ALCOHOL USE [None]
  - EPISTAXIS [None]
  - FACIAL BONES FRACTURE [None]
  - FALL [None]
  - INJURY [None]
